FAERS Safety Report 24987335 (Version 5)
Quarter: 2025Q1

REPORT INFORMATION
  Report Type: Spontaneous
  Country: US (occurrence: US)
  Receive Date: 20250219
  Receipt Date: 20250326
  Transmission Date: 20250408
  Serious: Yes (Life-Threatening, Hospitalization)
  Sender: PFIZER
  Company Number: US-PFIZER INC-PV202500018512

PATIENT
  Age: 68 Year
  Sex: Female
  Weight: 97.959 kg

DRUGS (7)
  1. PREMARIN [Suspect]
     Active Substance: ESTROGENS, CONJUGATED
     Indication: Hyperhidrosis
     Dosage: 0.625 MG, 1X/DAY
     Route: 048
     Dates: start: 20230815
  2. PREMARIN [Suspect]
     Active Substance: ESTROGENS, CONJUGATED
     Indication: Menopausal symptoms
  3. GABAPENTIN [Suspect]
     Active Substance: GABAPENTIN
     Indication: Hyperhidrosis
     Dosage: 300 MG, 1X/DAY
     Route: 048
     Dates: start: 202301
  4. GABAPENTIN [Suspect]
     Active Substance: GABAPENTIN
     Indication: Menopausal symptoms
  5. VITAMIN D NOS [Concomitant]
     Active Substance: CHOLECALCIFEROL\ERGOCALCIFEROL
     Indication: Vitamin D deficiency
     Dosage: 5000 IU, 1X/DAY
  6. MAGNESIUM [Concomitant]
     Active Substance: MAGNESIUM
     Indication: Neuropathy peripheral
     Dosage: 400 MG, 1X/DAY
  7. PROPRANOLOL [Concomitant]
     Active Substance: PROPRANOLOL HYDROCHLORIDE
     Indication: Tremor
     Dosage: 20 MG, 2X/DAY

REACTIONS (1)
  - Gallbladder disorder [Not Recovered/Not Resolved]

NARRATIVE: CASE EVENT DATE: 20241013
